FAERS Safety Report 12732754 (Version 3)
Quarter: 2017Q1

REPORT INFORMATION
  Report Type: Spontaneous
  Country: US (occurrence: US)
  Receive Date: 20160912
  Receipt Date: 20170214
  Transmission Date: 20170428
  Serious: Yes (Other)
  Sender: FDA-Public Use
  Company Number: US-CELGENEUS-USA-2016091932

PATIENT
  Sex: Female

DRUGS (1)
  1. OTEZLA [Suspect]
     Active Substance: APREMILAST
     Indication: PSORIATIC ARTHROPATHY
     Dosage: 60 MILLIGRAM
     Route: 048

REACTIONS (8)
  - Vomiting [Unknown]
  - Dizziness [Unknown]
  - Intestinal congestion [Unknown]
  - Nausea [Unknown]
  - Suicidal ideation [Unknown]
  - Diarrhoea [Unknown]
  - Migraine [Unknown]
  - Depression [Unknown]
